FAERS Safety Report 12080148 (Version 1)
Quarter: 2016Q1

REPORT INFORMATION
  Report Type: Spontaneous
  Country: CA (occurrence: CA)
  Receive Date: 20160216
  Receipt Date: 20160216
  Transmission Date: 20160526
  Serious: Yes (Other)
  Sender: FDA-Public Use
  Company Number: CA-MYLANLABS-2016M1004964

PATIENT

DRUGS (5)
  1. VALPROIC ACID. [Suspect]
     Active Substance: VALPROIC ACID
     Indication: SCHIZOAFFECTIVE DISORDER BIPOLAR TYPE
     Route: 065
     Dates: start: 201210, end: 20130324
  2. ASENAPINE [Interacting]
     Active Substance: ASENAPINE
     Dosage: DECREASED TO 10 MG DAILY ON 12 JUNE 2013
     Route: 060
     Dates: start: 20121118, end: 20130617
  3. ASENAPINE [Interacting]
     Active Substance: ASENAPINE
     Indication: SCHIZOAFFECTIVE DISORDER BIPOLAR TYPE
     Dosage: UP TO 10 MG TWICE DAILY DECREASED TO
     Route: 060
     Dates: start: 20121118, end: 20130617
  4. LURASIDONE [Concomitant]
     Active Substance: LURASIDONE
     Indication: SCHIZOAFFECTIVE DISORDER BIPOLAR TYPE
     Dosage: 40 MG DAILY
     Route: 065
     Dates: start: 201303
  5. LORAZEPAM. [Concomitant]
     Active Substance: LORAZEPAM
     Indication: SCHIZOAFFECTIVE DISORDER BIPOLAR TYPE
     Route: 065

REACTIONS (2)
  - Drug interaction [Recovered/Resolved]
  - Stauffer^s syndrome [Recovered/Resolved]

NARRATIVE: CASE EVENT DATE: 20130524
